FAERS Safety Report 17110570 (Version 1)
Quarter: 2019Q4

REPORT INFORMATION
  Report Type: Spontaneous
  Country: US (occurrence: US)
  Receive Date: 20191203
  Receipt Date: 20191203
  Transmission Date: 20200122
  Serious: Yes (Hospitalization)
  Sender: FDA-Public Use
  Company Number: None

PATIENT
  Age: 77 Year
  Sex: Female

DRUGS (2)
  1. TYMLOS [Suspect]
     Active Substance: ABALOPARATIDE
     Dates: start: 20191024, end: 20191127
  2. TYMLOS [Suspect]
     Active Substance: ABALOPARATIDE
     Dates: start: 20191024, end: 20191127

REACTIONS (1)
  - Hypercalcaemia [None]

NARRATIVE: CASE EVENT DATE: 20191127
